FAERS Safety Report 5507370-1 (Version None)
Quarter: 2007Q4

REPORT INFORMATION
  Report Type: 
  Country: None (occurrence: None)
  Receive Date: 20071106
  Receipt Date: 20071023
  Transmission Date: 20080405
  Serious: Yes (Disabling, Other)
  Sender: FDA-Public Use
  Company Number: GB-NOVOPROD-266542

PATIENT
  Sex: Male

DRUGS (4)
  1. LEVEMIR [Suspect]
     Indication: TYPE 1 DIABETES MELLITUS
     Dosage: 18 + 18 IU, QD
     Route: 058
     Dates: start: 20070322
  2. LEVOTHYROXINE SODIUM [Concomitant]
     Dosage: 150 UG, QD
     Route: 048
  3. RABEPRAZOLE SODIUM [Concomitant]
     Dosage: 20 MG, QD
     Route: 048
  4. NOVORAPID [Concomitant]
     Dosage: UNK, TID
     Route: 058

REACTIONS (3)
  - BLINDNESS [None]
  - HAEMORRHAGE [None]
  - VITREOUS FLOATERS [None]
